FAERS Safety Report 6637986-0 (Version None)
Quarter: 2010Q1

REPORT INFORMATION
  Report Type: 
  Country: None (occurrence: None)
  Receive Date: 20100312
  Receipt Date: 20100222
  Transmission Date: 20100710
  Serious: Yes (Death, Hospitalization, Other)
  Sender: FDA-Public Use
  Company Number: JPI-P-009793

PATIENT
  Age: 75 Year
  Sex: Male
  Weight: 94.8018 kg

DRUGS (3)
  1. XYREM [Suspect]
     Indication: CATAPLEXY
     Dosage: SEE IMAGE
     Route: 048
     Dates: start: 20091231, end: 20100209
  2. XYREM [Suspect]
     Indication: CATAPLEXY
     Dosage: SEE IMAGE
     Route: 048
     Dates: start: 20100212, end: 20100213
  3. XYREM [Suspect]
     Indication: CATAPLEXY
     Dosage: SEE IMAGE
     Route: 048
     Dates: start: 20041015

REACTIONS (6)
  - AMMONIA INCREASED [None]
  - APHASIA [None]
  - CATATONIA [None]
  - EYE MOVEMENT DISORDER [None]
  - HEPATIC NEOPLASM MALIGNANT [None]
  - LOSS OF CONSCIOUSNESS [None]
